FAERS Safety Report 25101804 (Version 2)
Quarter: 2025Q2

REPORT INFORMATION
  Report Type: Report from Study
  Country: US (occurrence: US)
  Receive Date: 20250320
  Receipt Date: 20250401
  Transmission Date: 20250717
  Serious: Yes (Hospitalization, Other)
  Sender: TAKEDA
  Company Number: US-TAKEDA-2025TUS028204

PATIENT
  Sex: Female

DRUGS (12)
  1. PONATINIB [Suspect]
     Active Substance: PONATINIB
     Indication: Acute lymphocytic leukaemia
     Dosage: 45 MILLIGRAM, QD
  2. PONATINIB [Suspect]
     Active Substance: PONATINIB
     Dosage: 45 MILLIGRAM, QD
  3. KEPPRA [Concomitant]
     Active Substance: LEVETIRACETAM
  4. LACOSAMIDE [Concomitant]
     Active Substance: LACOSAMIDE
  5. CANDESARTAN CILEXETIL [Concomitant]
     Active Substance: CANDESARTAN CILEXETIL
  6. BISOPROLOL FUMARATE [Concomitant]
     Active Substance: BISOPROLOL FUMARATE
  7. ROSUVASTATIN CALCIUM [Concomitant]
     Active Substance: ROSUVASTATIN CALCIUM
  8. LOKELMA [Concomitant]
     Active Substance: SODIUM ZIRCONIUM CYCLOSILICATE
  9. VITAMIN D3 [Concomitant]
     Active Substance: CHOLECALCIFEROL
  10. SODIUM BICARBONATE [Concomitant]
     Active Substance: SODIUM BICARBONATE
  11. FOLIC ACID [Concomitant]
     Active Substance: FOLIC ACID
  12. IRON [Concomitant]
     Active Substance: IRON

REACTIONS (3)
  - Epilepsy [Unknown]
  - Renal disorder [Unknown]
  - Off label use [Unknown]
